FAERS Safety Report 23828292 (Version 1)
Quarter: 2024Q2

REPORT INFORMATION
  Report Type: Spontaneous
  Country: EG (occurrence: EG)
  Receive Date: 20240508
  Receipt Date: 20240508
  Transmission Date: 20240716
  Serious: Yes (Death)
  Sender: FDA-Public Use
  Company Number: EG-IHL-000547

PATIENT
  Age: 90 Year
  Sex: Male

DRUGS (5)
  1. VENLAFAXINE HYDROCHLORIDE [Suspect]
     Active Substance: VENLAFAXINE HYDROCHLORIDE
     Indication: Product used for unknown indication
     Dosage: METABOLIC RATIO (MR) FOR VENLAFAXINE 13 MICROGRAMS PER LITER
     Route: 065
  2. DESVENLAFAXINE [Suspect]
     Active Substance: DESVENLAFAXINE
     Indication: Product used for unknown indication
     Dosage: METABOLIC RATIO (MR) FOR O-DESMETHYLVENLAFAXINE (ODV) 19.7 MICROGRAMS PER LITER
     Route: 065
  3. SILDENAFIL [Suspect]
     Active Substance: SILDENAFIL
     Indication: Product used for unknown indication
     Dosage: METABOLIC RATIO (MR) FOR SLIDENAFIL 92 MICROGRAMS PER LITER
     Route: 065
  4. FENTANYL [Suspect]
     Active Substance: FENTANYL\FENTANYL CITRATE
     Indication: Product used for unknown indication
     Dosage: METABOLIC RATIO (MR) FOR FENTANYL (FEN) 5 MICROGRAMS PER LITER
     Route: 065
  5. NORFENTANYL [Suspect]
     Active Substance: NORFENTANYL
     Indication: Product used for unknown indication
     Dosage: METABOLIC RATIO FOR NOR-FENTANYL 0.6 MICROGRAMS PER LITER
     Route: 065

REACTIONS (4)
  - Toxicity to various agents [Fatal]
  - Death [Fatal]
  - Drug interaction [Fatal]
  - Drug-genetic interaction [Fatal]
